FAERS Safety Report 8006985-9 (Version None)
Quarter: 2011Q4

REPORT INFORMATION
  Report Type: 
  Country: None (occurrence: None)
  Receive Date: 20111227
  Receipt Date: 20111209
  Transmission Date: 20120403
  Serious: Yes (Other)
  Sender: FDA-Public Use
  Company Number: PHHY2011DE107959

PATIENT
  Age: 59 Year
  Sex: Female

DRUGS (3)
  1. FEMARA [Interacting]
     Indication: BREAST CANCER
     Dosage: 2.5 MG, DAILY
     Route: 048
     Dates: start: 20111001
  2. GLYBURIDE [Suspect]
     Indication: DIABETES MELLITUS
  3. METFORMIN HCL [Interacting]
     Indication: DIABETES MELLITUS

REACTIONS (2)
  - BLOOD GLUCOSE INCREASED [None]
  - DRUG INTERACTION [None]
